FAERS Safety Report 10067967 (Version 2)
Quarter: 2014Q2

REPORT INFORMATION
  Report Type: Spontaneous
  Country: CN (occurrence: CN)
  Receive Date: 20140409
  Receipt Date: 20140409
  Transmission Date: 20141212
  Serious: Yes (Other)
  Sender: FDA-Public Use
  Company Number: CN-PFIZER INC-2014093132

PATIENT
  Sex: 0

DRUGS (4)
  1. ZOLOFT [Suspect]
     Dosage: UNK
     Route: 048
  2. LIPITOR [Suspect]
     Dosage: UNK
     Route: 048
  3. MECOBALAMIN [Concomitant]
     Dosage: UNK
     Route: 048
  4. WARFARIN [Concomitant]
     Dosage: UNK
     Route: 048

REACTIONS (3)
  - Blood bilirubin increased [Unknown]
  - Ocular icterus [Unknown]
  - Yellow skin [Unknown]
